FAERS Safety Report 9680395 (Version 1)
Quarter: 2013Q4

REPORT INFORMATION
  Report Type: Spontaneous
  Country: GB (occurrence: GB)
  Receive Date: 20131111
  Receipt Date: 20131111
  Transmission Date: 20140711
  Serious: Yes (Other)
  Sender: FDA-Public Use
  Company Number: GB-SHIRE-ALL1-2013-07539

PATIENT
  Age: 54 Year
  Sex: Female

DRUGS (1)
  1. MEZAVANT XL [Suspect]
     Indication: COLITIS
     Dosage: UNK UNK, UNKNOWN
     Route: 048

REACTIONS (5)
  - Inflammation [Recovered/Resolved with Sequelae]
  - Lung disorder [Recovered/Resolved with Sequelae]
  - Pulmonary mass [Unknown]
  - Rhinorrhoea [Unknown]
  - Dyspnoea [Unknown]
